FAERS Safety Report 4756427-1 (Version None)
Quarter: 2005Q3

REPORT INFORMATION
  Report Type: 
  Country: None (occurrence: None)
  Receive Date: 20050830
  Receipt Date: 20050621
  Transmission Date: 20060218
  Serious: No
  Sender: FDA-Public Use
  Company Number: US-GLAXOSMITHKLINE-A0563620A

PATIENT
  Age: 55 Year
  Sex: Female

DRUGS (5)
  1. WELLBUTRIN XL [Suspect]
     Dosage: 600MG PER DAY
     Route: 048
     Dates: end: 20050621
  2. SYNTHROID [Concomitant]
  3. LIPITOR [Concomitant]
  4. NEXIUM [Concomitant]
  5. FOSAMAX [Concomitant]

REACTIONS (1)
  - PALPITATIONS [None]
